FAERS Safety Report 5233579-0 (Version None)
Quarter: 2007Q1

REPORT INFORMATION
  Report Type: 
  Country: None (occurrence: None)
  Receive Date: 20070208
  Receipt Date: 20070129
  Transmission Date: 20070707
  Serious: Yes (Hospitalization)
  Sender: FDA-Public Use
  Company Number: US-AMGEN-US208806

PATIENT
  Sex: Female

DRUGS (5)
  1. ARANESP [Suspect]
     Indication: RENAL FAILURE CHRONIC
     Route: 065
     Dates: start: 20060301, end: 20061101
  2. IRON [Concomitant]
     Route: 042
  3. STARLIX [Concomitant]
  4. ANTIBIOTICS [Concomitant]
  5. PROTONIX [Concomitant]

REACTIONS (3)
  - COLON CANCER [None]
  - GASTROINTESTINAL ULCER [None]
  - HAEMATEMESIS [None]
